FAERS Safety Report 8014387-4 (Version None)
Quarter: 2011Q4

REPORT INFORMATION
  Report Type: 
  Country: None (occurrence: None)
  Receive Date: 20111229
  Receipt Date: 20111219
  Transmission Date: 20120403
  Serious: Yes (Hospitalization, Other)
  Sender: FDA-Public Use
  Company Number: PHEH2011US012068

PATIENT
  Sex: Female

DRUGS (2)
  1. GLEEVEC [Suspect]
     Dosage: 400 MG, QD
     Route: 048
  2. ANTIBIOTICS [Concomitant]
     Indication: IMPAIRED GASTRIC EMPTYING

REACTIONS (2)
  - ARTHROPATHY [None]
  - GASTRIC DISORDER [None]
